FAERS Safety Report 23841358 (Version 1)
Quarter: 2024Q2

REPORT INFORMATION
  Report Type: Spontaneous
  Country: SE (occurrence: SE)
  Receive Date: 20240510
  Receipt Date: 20240510
  Transmission Date: 20240716
  Serious: Yes (Life-Threatening, Hospitalization, Disabling, Other)
  Sender: FDA-Public Use
  Company Number: None

PATIENT

DRUGS (8)
  1. BUPROPION HYDROCHLORIDE [Suspect]
     Active Substance: BUPROPION HYDROCHLORIDE
     Indication: Product used for unknown indication
     Dosage: UNK (1X1 DOSE: LATER DOSE)
     Route: 048
     Dates: start: 20210201, end: 20230420
  2. TRIMEPRAZINE TARTRATE [Suspect]
     Active Substance: TRIMEPRAZINE TARTRATE
     Indication: Anxiety
     Dosage: UNK (ASNECESSARY) (AS NEEDED DOSE: FIRST DOSE)
     Route: 048
     Dates: start: 20230228, end: 20230301
  3. FLUOXETINE [Suspect]
     Active Substance: FLUOXETINE HYDROCHLORIDE
     Indication: Depression
     Dosage: 20 MG, QD (1 TABLET IN THE MORNING DOSE: LATER DOSE)
     Route: 048
     Dates: start: 20221006, end: 20230420
  4. AGOMELATINE [Suspect]
     Active Substance: AGOMELATINE
     Indication: Depression
     Dosage: UNK (TO NIGHT DOSE: LATER DOSE)
     Route: 048
     Dates: start: 20230126, end: 20230420
  5. QUETIAPINE FUMARATE [Suspect]
     Active Substance: QUETIAPINE FUMARATE
     Indication: Sleep disorder
     Dosage: 100 MG, QD (1 TABLET AT NIGHT DOSE: LATER DOSE)
     Route: 048
     Dates: start: 20220830, end: 20240315
  6. PROPIOMAZINE [Suspect]
     Active Substance: PROPIOMAZINE
     Indication: Sleep disorder
     Dosage: UNK UNK, QD (1-2 TABLETS AT NIGHT DOSE: LATER DOSE)
     Route: 048
     Dates: start: 20221019, end: 20240315
  7. MIRTAZAPINE [Suspect]
     Active Substance: MIRTAZAPINE
     Indication: Sleep disorder
     Dosage: 30 MG, QD (1 TABLET AT NIGHT DOSE: LATER DOSE)
     Route: 048
     Dates: start: 20210201, end: 20210519
  8. PROMETHAZINE HYDROCHLORIDE\THIOUREA [Suspect]
     Active Substance: PROMETHAZINE HYDROCHLORIDE\THIOUREA
     Indication: Sleep disorder
     Dosage: 25 MG, QD (1 TABLET AT NIGHT DOSE: LATER DOSE)
     Route: 048
     Dates: start: 20210219, end: 20220919

REACTIONS (3)
  - Intentional self-injury [Recovering/Resolving]
  - Suicide attempt [Recovered/Resolved]
  - Anxiety [Unknown]

NARRATIVE: CASE EVENT DATE: 20210401
